FAERS Safety Report 25704430 (Version 1)
Quarter: 2025Q3

REPORT INFORMATION
  Report Type: Spontaneous
  Country: EU (occurrence: EU)
  Receive Date: 20250820
  Receipt Date: 20250820
  Transmission Date: 20251020
  Serious: Yes (Other)
  Sender: GLAXOSMITHKLINE
  Company Number: None

PATIENT

DRUGS (2)
  1. VENTOLIN [Suspect]
     Active Substance: ALBUTEROL SULFATE
     Indication: Product used for unknown indication
     Route: 065
  2. NITROUS OXIDE [Suspect]
     Active Substance: NITROUS OXIDE
     Indication: Product used for unknown indication
     Route: 065

REACTIONS (2)
  - Drug abuse [Unknown]
  - Intentional product misuse [Unknown]
